FAERS Safety Report 5277428-3 (Version None)
Quarter: 2007Q1

REPORT INFORMATION
  Report Type: 
  Country: None (occurrence: None)
  Receive Date: 20061213
  Receipt Date: 20040616
  Transmission Date: 20070707
  Serious: Yes (Hospitalization)
  Sender: FDA-Public Use
  Company Number: 2004UW12479

PATIENT
  Age: 63 Year
  Sex: Female
  Weight: 68.9467 kg

DRUGS (11)
  1. SEROQUEL [Suspect]
     Indication: OBSESSIVE-COMPULSIVE DISORDER
     Dosage: 400 MG DAILY PO
     Route: 048
     Dates: start: 20040501, end: 20040501
  2. SEROQUEL [Suspect]
     Indication: OBSESSIVE-COMPULSIVE DISORDER
     Dosage: UP TO 100 MG DAILY
     Dates: start: 20040501
  3. SEROQUEL [Suspect]
     Indication: OBSESSIVE-COMPULSIVE DISORDER
     Dosage: TITRATED DOWN
     Dates: start: 20040601
  4. AMIODARONE HCL [Concomitant]
  5. ADVAIR DISKUS 100/50 [Concomitant]
  6. ALBUTEROL [Concomitant]
  7. PHOSLO [Concomitant]
  8. IMDUR [Concomitant]
  9. ASPIRIN [Concomitant]
  10. PROAMATINE [Concomitant]
  11. QUININE [Concomitant]

REACTIONS (2)
  - DEAFNESS [None]
  - INTENTIONAL OVERDOSE [None]
